FAERS Safety Report 10628450 (Version 1)
Quarter: 2014Q4

REPORT INFORMATION
  Report Type: Spontaneous
  Country: US (occurrence: US)
  Receive Date: 20141205
  Receipt Date: 20141205
  Transmission Date: 20150529
  Serious: No
  Sender: FDA-Public Use
  Company Number: US-BRISTOL-MYERS SQUIBB COMPANY-21205182

PATIENT
  Sex: Female

DRUGS (1)
  1. COUMADIN [Suspect]
     Active Substance: WARFARIN SODIUM
     Dosage: MONDAYS, WEDNESDAYS, AND FRIDAYS AND 1/2 TABLETS ON THURSDAYS, SATURDAYS, AND SUNDAY

REACTIONS (2)
  - Muscle spasms [Unknown]
  - Contusion [Unknown]
